FAERS Safety Report 10257793 (Version 1)
Quarter: 2014Q2

REPORT INFORMATION
  Report Type: Spontaneous
  Country: US (occurrence: US)
  Receive Date: 20140625
  Receipt Date: 20140625
  Transmission Date: 20141212
  Serious: Yes (Life-Threatening, Other)
  Sender: FDA-Public Use
  Company Number: US-009507513-1406USA010660

PATIENT
  Age: 44 Year
  Sex: Male
  Weight: 177 kg

DRUGS (1)
  1. DULERA [Suspect]
     Indication: ASTHMA
     Dosage: 200/5 MCG, 4 PUFFS EACH DAY
     Route: 055
     Dates: start: 20130201

REACTIONS (11)
  - Chest pain [Unknown]
  - Dyspnoea [Unknown]
  - Asthma [Unknown]
  - Asthenia [Unknown]
  - Pain [Unknown]
  - Sleep disorder [Unknown]
  - Anxiety [Unknown]
  - Fear [Unknown]
  - Wheezing [Unknown]
  - Dizziness [Unknown]
  - Drug ineffective [Unknown]
